FAERS Safety Report 6020218-4 (Version None)
Quarter: 2008Q4

REPORT INFORMATION
  Report Type: 
  Country: None (occurrence: None)
  Receive Date: 20081226
  Receipt Date: 20081215
  Transmission Date: 20090506
  Serious: Yes (Other)
  Sender: FDA-Public Use
  Company Number: PHHY2008JP32061

PATIENT

DRUGS (1)
  1. RESCULA [Suspect]

REACTIONS (1)
  - CHEILITIS [None]
